FAERS Safety Report 12770162 (Version 2)
Quarter: 2016Q4

REPORT INFORMATION
  Report Type: Spontaneous
  Country: US (occurrence: US)
  Receive Date: 20160922
  Receipt Date: 20161012
  Transmission Date: 20170207
  Serious: No
  Sender: FDA-Public Use
  Company Number: US-PFIZER INC-2016438272

PATIENT
  Age: 87 Year
  Sex: Female

DRUGS (1)
  1. LATANOPROST. [Suspect]
     Active Substance: LATANOPROST
     Indication: GLAUCOMA
     Dosage: ONE DROP OF IT IN NIPPLE SIZE AT BED TIME.
     Route: 047

REACTIONS (2)
  - Wrong technique in product usage process [Unknown]
  - Product dropper issue [Unknown]

NARRATIVE: CASE EVENT DATE: 20160912
